FAERS Safety Report 25423666 (Version 2)
Quarter: 2025Q4

REPORT INFORMATION
  Report Type: Report from Study
  Country: CA (occurrence: CA)
  Receive Date: 20250611
  Receipt Date: 20251027
  Transmission Date: 20260118
  Serious: Yes (Other)
  Sender: AMGEN
  Company Number: CA-AMGEN-CANSL2025114304

PATIENT
  Age: 55 Year
  Sex: Male

DRUGS (1)
  1. ADALIMUMAB [Suspect]
     Active Substance: ADALIMUMAB
     Indication: Colitis ulcerative
     Dosage: 40 MILLIGRAM, Q2WK
     Route: 058
     Dates: start: 20250220

REACTIONS (4)
  - Deafness [Unknown]
  - Fatigue [Unknown]
  - Tinnitus [Unknown]
  - Insomnia [Unknown]

NARRATIVE: CASE EVENT DATE: 20250201
